FAERS Safety Report 24353187 (Version 1)
Quarter: 2024Q3

REPORT INFORMATION
  Report Type: Spontaneous
  Country: US (occurrence: US)
  Receive Date: 20240923
  Receipt Date: 20240923
  Transmission Date: 20241016
  Serious: No
  Sender: PFIZER
  Company Number: US-PFIZER INC-202400258004

PATIENT
  Age: 81 Year
  Sex: Female
  Weight: 55.34 kg

DRUGS (1)
  1. GENOTROPIN [Suspect]
     Active Substance: SOMATROPIN
     Dosage: 0.2 FIVE DAYS A WEEK, 0.4 TWO DAYS A WEEK
     Dates: start: 202401

REACTIONS (2)
  - Device breakage [Unknown]
  - Drug dose omission by device [Unknown]
